FAERS Safety Report 4818603-9 (Version None)
Quarter: 2005Q4

REPORT INFORMATION
  Report Type: 
  Country: None (occurrence: None)
  Receive Date: 20051031
  Receipt Date: 20051024
  Transmission Date: 20060501
  Serious: Yes (Other)
  Sender: FDA-Public Use
  Company Number: WAES 0510NLD00017

PATIENT
  Sex: 0

DRUGS (2)
  1. CRIXIVAN [Suspect]
  2. LAMIVUDINE [Concomitant]

REACTIONS (1)
  - NON-HODGKIN'S LYMPHOMA [None]
